FAERS Safety Report 8242570-1 (Version None)
Quarter: 2012Q1

REPORT INFORMATION
  Report Type: 
  Country: None (occurrence: None)
  Receive Date: 20120329
  Receipt Date: 20120323
  Transmission Date: 20120608
  Serious: Yes (Other)
  Sender: FDA-Public Use
  Company Number: PHHY2012FI007541

PATIENT
  Sex: Male

DRUGS (4)
  1. SERONIL [Concomitant]
  2. CLOZAPINE [Suspect]
     Dosage: 300 MG, PER DAY
  3. ZYPREXA [Suspect]
     Dosage: UNK UKN, UNK
     Dates: start: 20110101
  4. CLOZAPINE [Suspect]
     Indication: PSYCHOTIC DISORDER
     Dosage: 350 MG/DAY
     Dates: start: 20110801

REACTIONS (2)
  - ANTIPSYCHOTIC DRUG LEVEL BELOW THERAPEUTIC [None]
  - OCULOGYRIC CRISIS [None]
